FAERS Safety Report 8860766 (Version 2)
Quarter: 2013Q1

REPORT INFORMATION
  Report Type: Spontaneous
  Country: US (occurrence: US)
  Receive Date: 20121026
  Receipt Date: 20130123
  Transmission Date: 20140127
  Serious: No
  Sender: FDA-Public Use
  Company Number: US-009507513-1210USA010693

PATIENT
  Age: 70 None
  Sex: Female
  Weight: 66.67 kg

DRUGS (11)
  1. LOSARTAN POTASSIUM [Suspect]
     Indication: CARDIAC OPERATION
     Dosage: UNK
     Route: 048
     Dates: start: 20120909, end: 20120924
  2. LOSARTAN POTASSIUM [Suspect]
     Indication: HYPERTENSION
     Dosage: 25 MG, QD
     Route: 048
     Dates: start: 20120613, end: 20120905
  3. LANTUS [Concomitant]
     Dosage: UNK
  4. HUMALOG [Concomitant]
     Dosage: UNK
  5. SYNTHROID [Concomitant]
     Dosage: UNK
     Route: 048
  6. NEXIUM [Concomitant]
     Dosage: UNK
     Route: 048
  7. ASPIRIN [Concomitant]
     Dosage: UNK
     Route: 048
  8. CALCIUM (UNSPECIFIED) [Concomitant]
     Dosage: UNK
     Route: 048
  9. CYANOCOBALAMIN [Concomitant]
     Dosage: UNK
     Route: 048
  10. IRON (UNSPECIFIED) [Concomitant]
     Dosage: UNK
     Route: 048
  11. FOLIC ACID [Concomitant]
     Dosage: UNK
     Route: 048

REACTIONS (6)
  - Oral mucosal blistering [Unknown]
  - Paraesthesia oral [Recovering/Resolving]
  - Stomatitis [Recovering/Resolving]
  - Swollen tongue [Recovering/Resolving]
  - Swelling face [Unknown]
  - Lip swelling [Unknown]
